FAERS Safety Report 23437358 (Version 1)
Quarter: 2024Q1

REPORT INFORMATION
  Report Type: Other
  Country: PT (occurrence: None)
  Receive Date: 20240124
  Receipt Date: 20240124
  Transmission Date: 20240409
  Serious: Yes (Death, Hospitalization)
  Sender: FDA-Public Use
  Company Number: PT-ROCHE-3495089

PATIENT
  Age: 61 Year
  Sex: Female

DRUGS (10)
  1. TAXOL [Suspect]
     Active Substance: PACLITAXEL
     Indication: Breast cancer
     Dosage: WEEKLY
     Route: 042
     Dates: start: 20181116, end: 20181120
  2. HERCEPTIN [Suspect]
     Active Substance: TRASTUZUMAB
     Indication: Breast cancer
     Dosage: Q3W - EVERY 3 WEEKS
     Route: 058
     Dates: start: 20181120, end: 20181120
  3. ACETAMINOPHEN [Concomitant]
     Active Substance: ACETAMINOPHEN
     Indication: Febrile neutropenia
     Dosage: ONGOING = NOT CHECKED
     Dates: start: 20181126, end: 20181126
  4. PIPERACILLIN [Concomitant]
     Active Substance: PIPERACILLIN
     Indication: Febrile neutropenia
     Dosage: ONGOING = NOT CHECKED
     Dates: start: 20181126, end: 20181127
  5. TAZOBACTAM [Concomitant]
     Active Substance: TAZOBACTAM
     Indication: Febrile neutropenia
     Dosage: ONGOING = NOT CHECKED
     Dates: start: 20181126, end: 20181127
  6. AMIKACIN [Concomitant]
     Active Substance: AMIKACIN
     Indication: Febrile neutropenia
     Dosage: ONGOING = NOT CHECKED
     Dates: start: 20181128
  7. SULFAMETHOXAZOLE\TRIMETHOPRIM [Concomitant]
     Active Substance: SULFAMETHOXAZOLE\TRIMETHOPRIM
     Indication: Febrile neutropenia
     Dosage: ONGOING = NOT CHECKED
     Dates: start: 20181128
  8. FILGRASTIM [Concomitant]
     Active Substance: FILGRASTIM
     Indication: Febrile neutropenia
     Dosage: ONGOING = NOT CHECKED
     Dates: start: 20181128, end: 20181128
  9. MEROPENEM [Concomitant]
     Active Substance: MEROPENEM
     Indication: Febrile neutropenia
     Dosage: ONGOING = NOT CHECKED
     Dates: start: 20181128
  10. MORPHINE [Concomitant]
     Active Substance: MORPHINE
     Indication: Febrile neutropenia
     Dosage: ONGOING = NOT CHECKED
     Dates: start: 20181128, end: 20181128

REACTIONS (1)
  - Acute respiratory distress syndrome [Fatal]

NARRATIVE: CASE EVENT DATE: 20181127
